FAERS Safety Report 16528060 (Version 4)
Quarter: 2019Q3

REPORT INFORMATION
  Report Type: Report from Study
  Country: US (occurrence: US)
  Receive Date: 20190704
  Receipt Date: 20190923
  Transmission Date: 20191004
  Serious: No
  Sender: FDA-Public Use
  Company Number: PHEH2019US028175

PATIENT
  Age: 2 Year
  Sex: Male
  Weight: 15 kg

DRUGS (2)
  1. ILARIS [Suspect]
     Active Substance: CANAKINUMAB
     Indication: STILL^S DISEASE
     Dosage: 56 MG, Q3W
     Route: 030
     Dates: start: 20190419
  2. ILARIS [Suspect]
     Active Substance: CANAKINUMAB
     Dosage: 56 MG, QMO
     Route: 030

REACTIONS (3)
  - Pyrexia [Unknown]
  - Decreased activity [Not Recovered/Not Resolved]
  - Vomiting [Recovered/Resolved]

NARRATIVE: CASE EVENT DATE: 20190630
